FAERS Safety Report 10285475 (Version 3)
Quarter: 2018Q2

REPORT INFORMATION
  Report Type: Report from Study
  Country: US (occurrence: US)
  Receive Date: 20140709
  Receipt Date: 20180516
  Transmission Date: 20180711
  Serious: Yes (Other)
  Sender: FDA-Public Use
  Company Number: US-ROCHE-1431144

PATIENT
  Age: 10 Year
  Sex: Female
  Weight: 30.5 kg

DRUGS (5)
  1. NUTROPIN AQ [Suspect]
     Active Substance: SOMATROPIN
     Dosage: 20 MG/ 2ML
     Route: 058
  2. TRILEPTAL [Concomitant]
     Active Substance: OXCARBAZEPINE
     Route: 048
  3. NUTROPIN AQ [Suspect]
     Active Substance: SOMATROPIN
     Indication: HYPOPITUITARISM
     Dosage: 20 MG/ 2ML
     Route: 058
  4. CARBAMAZEPINE. [Concomitant]
     Active Substance: CARBAMAZEPINE
     Route: 048
  5. NUTROPIN AQ [Suspect]
     Active Substance: SOMATROPIN
     Indication: TURNER^S SYNDROME
     Dosage: 20 MG/ 2ML
     Route: 058

REACTIONS (12)
  - Cardiac murmur [Unknown]
  - Abdominal pain [Unknown]
  - Constipation [Unknown]
  - Seizure [Unknown]
  - Protein total increased [Unknown]
  - Blood chloride increased [Unknown]
  - Blood creatinine decreased [Unknown]
  - Weight increased [Unknown]
  - Growth retardation [Unknown]
  - Breast pain [Unknown]
  - Pain in extremity [Recovered/Resolved]
  - Acne [Unknown]

NARRATIVE: CASE EVENT DATE: 201403
